FAERS Safety Report 21612277 (Version 1)
Quarter: 2022Q4

REPORT INFORMATION
  Report Type: Spontaneous
  Country: DK (occurrence: DK)
  Receive Date: 20221118
  Receipt Date: 20221118
  Transmission Date: 20230113
  Serious: Yes (Other)
  Sender: FDA-Public Use
  Company Number: None

PATIENT
  Age: 74 Year
  Sex: Male

DRUGS (2)
  1. OXALIPLATIN [Suspect]
     Active Substance: OXALIPLATIN
     Indication: Oesophageal adenocarcinoma
     Dosage: DOSAGE: UNKNOWN. CAPOX CHEMOTHERAPY PROTOCOL. STRENGTH: 5 MG/ML,THERAPY END DATE:NASK
     Dates: start: 20200403
  2. CAPECITABINE [Concomitant]
     Active Substance: CAPECITABINE
     Indication: Oesophageal adenocarcinoma
     Dosage: CAPOX CHEMOTHERAPY PROTOCOL
     Dates: start: 20200403

REACTIONS (9)
  - Neuropathy peripheral [Unknown]
  - Musculoskeletal disorder [Not Recovered/Not Resolved]
  - Fibrosis [Unknown]
  - Erysipelas [Recovered/Resolved]
  - Infusion site warmth [Recovered/Resolved]
  - Infusion site erythema [Recovered/Resolved]
  - Infusion site pain [Unknown]
  - Infusion site thrombosis [Unknown]
  - Infusion site swelling [Recovered/Resolved]

NARRATIVE: CASE EVENT DATE: 20200101
